FAERS Safety Report 5593252-6 (Version None)
Quarter: 2008Q1

REPORT INFORMATION
  Report Type: 
  Country: None (occurrence: None)
  Receive Date: 20080115
  Receipt Date: 20080115
  Transmission Date: 20080703
  Serious: No
  Sender: FDA-Public Use
  Company Number: None

PATIENT
  Age: 57 Year
  Sex: Female
  Weight: 65.318 kg

DRUGS (2)
  1. CREST PRO-HEALTH ORAL RINSE CETYLPYRIDINIUM CHLORIDE 0.7% PROCTOR + GA [Suspect]
     Indication: DENTAL DISORDER PROPHYLAXIS
     Dosage: 20 ML IN A.M. DENTAL
     Route: 004
     Dates: start: 20071031, end: 20071231
  2. CREST PRO-HEALTH ORAL RINSE CETYLPYRIDINIUM CHLORIDE 0.7% PROCTOR + GA [Suspect]
     Indication: DENTAL DISORDER PROPHYLAXIS
     Dosage: 20 ML IN A.M. DENTAL
     Route: 004
     Dates: start: 20071031, end: 20071231

REACTIONS (1)
  - TOOTH DISCOLOURATION [None]
